FAERS Safety Report 9213188 (Version 1)
Quarter: 2013Q2

REPORT INFORMATION
  Report Type: Spontaneous
  Country: IT (occurrence: IT)
  Receive Date: 20130405
  Receipt Date: 20130405
  Transmission Date: 20140414
  Serious: Yes (Other)
  Sender: FDA-Public Use
  Company Number: IT-MYLANLABS-2013S1006722

PATIENT
  Age: 70 Year
  Sex: Male

DRUGS (7)
  1. GLYCERYL TRINITRATE [Suspect]
     Indication: CHEST PAIN
     Route: 062
     Dates: start: 20121221, end: 20121221
  2. METFORAL [Concomitant]
     Indication: PRODUCT USED FOR UNKNOWN INDICATION
  3. CARDIOASPIRIN [Concomitant]
     Indication: PRODUCT USED FOR UNKNOWN INDICATION
  4. LUCEN /01479302/ [Concomitant]
     Indication: PRODUCT USED FOR UNKNOWN INDICATION
  5. KARVEZIDE [Concomitant]
     Indication: PRODUCT USED FOR UNKNOWN INDICATION
  6. DOXAZOSIN MESYLATE [Concomitant]
     Indication: PRODUCT USED FOR UNKNOWN INDICATION
  7. CARVEDILOL [Concomitant]
     Indication: PRODUCT USED FOR UNKNOWN INDICATION

REACTIONS (5)
  - Syncope [Recovering/Resolving]
  - Vertigo [Recovering/Resolving]
  - Vision blurred [Recovering/Resolving]
  - Facial bones fracture [Recovering/Resolving]
  - Tendon injury [Recovering/Resolving]
